FAERS Safety Report 18364768 (Version 1)
Quarter: 2020Q4

REPORT INFORMATION
  Report Type: Spontaneous
  Country: US (occurrence: US)
  Receive Date: 20201009
  Receipt Date: 20201009
  Transmission Date: 20210114
  Serious: Yes (Hospitalization, Other)
  Sender: FDA-Public Use
  Company Number: US-GLAXOSMITHKLINE-US2020198016

PATIENT
  Age: 63 Year
  Sex: Male

DRUGS (2)
  1. BREO ELLIPTA [Suspect]
     Active Substance: FLUTICASONE FUROATE\VILANTEROL TRIFENATATE
     Indication: PRODUCT USED FOR UNKNOWN INDICATION
     Dosage: 200 MCG/MG, 1D
     Route: 048
     Dates: start: 20200601
  2. BREO ELLIPTA [Suspect]
     Active Substance: FLUTICASONE FUROATE\VILANTEROL TRIFENATATE
     Indication: PRODUCT USED FOR UNKNOWN INDICATION
     Dosage: 200 MCG/MG, 1D
     Route: 048
     Dates: start: 20200601

REACTIONS (5)
  - Cough [Unknown]
  - Drug ineffective [Recovered/Resolved]
  - Surgery [Unknown]
  - Loss of consciousness [Unknown]
  - Lung disorder [Unknown]

NARRATIVE: CASE EVENT DATE: 20200929
